FAERS Safety Report 25439175 (Version 1)
Quarter: 2025Q2

REPORT INFORMATION
  Report Type: Spontaneous
  Country: US (occurrence: US)
  Receive Date: 20250616
  Receipt Date: 20250616
  Transmission Date: 20250717
  Serious: Yes (Hospitalization, Other)
  Sender: AUROBINDO
  Company Number: US-MLMSERVICE-20250519-PI514205-00218-1

PATIENT
  Age: 64 Year
  Sex: Male

DRUGS (3)
  1. METHOTREXATE [Suspect]
     Active Substance: METHOTREXATE
     Indication: Myositis
     Route: 065
     Dates: start: 201904, end: 202302
  2. PREDNISONE [Concomitant]
     Active Substance: PREDNISONE
     Indication: Myositis
     Dosage: 40 MILLIGRAM, ONCE A DAY (TAPER STARTING AT 40 MG DAILY)
     Route: 065
     Dates: start: 201904
  3. Immunoglobulin [Concomitant]
     Indication: Myositis
     Route: 042

REACTIONS (2)
  - Drug ineffective [Unknown]
  - Leukopenia [Unknown]
